FAERS Safety Report 24837172 (Version 2)
Quarter: 2025Q1

REPORT INFORMATION
  Report Type: Spontaneous
  Country: US (occurrence: US)
  Receive Date: 20250113
  Receipt Date: 20250131
  Transmission Date: 20250408
  Serious: No
  Sender: ROCHE
  Company Number: US-ROCHE-10000176137

PATIENT
  Sex: Male

DRUGS (1)
  1. NUTROPIN AQ NUSPIN 10 [Suspect]
     Active Substance: SOMATROPIN
     Indication: Hypopituitarism
     Dosage: 10MG/2ML
     Route: 058
     Dates: start: 202301

REACTIONS (2)
  - Drug ineffective [Unknown]
  - No adverse event [Unknown]
